FAERS Safety Report 8902141 (Version 3)
Quarter: 2012Q4

REPORT INFORMATION
  Report Type: 
  Country: US (occurrence: US)
  Receive Date: 20121112
  Receipt Date: 20121221
  Transmission Date: 20130627
  Serious: Yes (Hospitalization)
  Sender: FDA-Public Use
  Company Number: US-CELGENEUS-163-21880-12110690

PATIENT
  Sex: Male

DRUGS (9)
  1. REVLIMID [Suspect]
     Indication: MULTIPLE MYELOMA
     Dosage: 10 Milligram
     Route: 048
     Dates: start: 20120404
  2. COUMADIN [Concomitant]
     Indication: DVT
     Dosage: 2.5 Milligram
     Route: 065
  3. COUMADIN [Concomitant]
     Indication: PULMONARY EMBOLISM
  4. VELCADE [Concomitant]
     Indication: MULTIPLE MYELOMA
     Route: 065
     Dates: start: 20120410
  5. DECADRON [Concomitant]
     Indication: MULTIPLE MYELOMA
     Dosage: 20 Milligram
     Route: 048
     Dates: start: 20120410
  6. SIMVASTATIN [Concomitant]
     Indication: HIGH CHOLESTEROL
     Dosage: 40 Milligram
     Route: 048
  7. MULTIVITAMINS [Concomitant]
     Indication: DRUG USE FOR UNKNOWN INDICATION
     Route: 048
  8. SYNTHROID [Concomitant]
     Indication: THYROID THERAPY
     Dosage: 50 Microgram
     Route: 048
  9. ZOMETA [Concomitant]
     Indication: DRUG USE FOR UNKNOWN INDICATION
     Route: 065

REACTIONS (1)
  - Tibia fracture [Recovering/Resolving]
